FAERS Safety Report 6371266-6 (Version None)
Quarter: 2009Q3

REPORT INFORMATION
  Report Type: 
  Country: None (occurrence: None)
  Receive Date: 20090923
  Receipt Date: 20070802
  Transmission Date: 20100115
  Serious: No
  Sender: FDA-Public Use
  Company Number: US-ASTRAZENECA-2007UW01900

PATIENT
  Age: 777 Month
  Sex: Male
  Weight: 98 kg

DRUGS (11)
  1. SEROQUEL [Suspect]
     Indication: BIPOLAR DISORDER
     Dosage: 100 MG TO 200 MG
     Route: 048
     Dates: start: 20030707, end: 20070101
  2. SEROQUEL [Suspect]
     Route: 048
     Dates: start: 20040219
  3. ZYPREXA [Concomitant]
     Dosage: 10 TO 15 MG
     Dates: start: 20000101, end: 20030101
  4. DEPAKOTE [Concomitant]
     Dates: start: 20000101, end: 20030101
  5. METFORMIN HCL [Concomitant]
     Dates: start: 20040216
  6. MONOPRIL [Concomitant]
     Dates: start: 20021016
  7. ZOCOR [Concomitant]
     Dates: start: 20040927
  8. ZELNORM [Concomitant]
     Dosage: 1/2 TABLET TWO TIMES A DAY
     Dates: start: 20040101
  9. LIPITOR [Concomitant]
     Route: 048
     Dates: start: 20040520
  10. NEXIUM [Concomitant]
     Dates: start: 20040203
  11. CLONAZEPAM [Concomitant]
     Dates: start: 20021020

REACTIONS (6)
  - BLOOD CHOLESTEROL INCREASED [None]
  - BLOOD TRIGLYCERIDES INCREASED [None]
  - DIABETES MELLITUS INADEQUATE CONTROL [None]
  - HYPERGLYCAEMIA [None]
  - IRRITABLE BOWEL SYNDROME [None]
  - TYPE 2 DIABETES MELLITUS [None]
